FAERS Safety Report 10522926 (Version 2)
Quarter: 2014Q4

REPORT INFORMATION
  Report Type: Spontaneous
  Country: GB (occurrence: None)
  Receive Date: 20141010
  Receipt Date: 20141021
  Transmission Date: 20150528
  Serious: Yes (Congenital Anomaly, Other)
  Sender: FDA-Public Use
  Company Number: 2014SCAL000175

PATIENT
  Sex: Female

DRUGS (1)
  1. VENLAFAXINE HYDROCHLORIDE (VENLAFAXINE HYDROCHLORIDE) UNKNOWN [Suspect]
     Active Substance: VENLAFAXINE HYDROCHLORIDE
     Indication: PRODUCT USED FOR UNKNOWN INDICATION
     Route: 064

REACTIONS (7)
  - Maternal drugs affecting foetus [None]
  - Neonatal respiratory distress syndrome [None]
  - Blood calcium decreased [None]
  - Myoclonic epilepsy [None]
  - Premature baby [None]
  - Tremor [None]
  - Agitation [None]
